FAERS Safety Report 15318997 (Version 1)
Quarter: 2018Q3

REPORT INFORMATION
  Report Type: Spontaneous
  Country: US (occurrence: US)
  Receive Date: 20180820
  Receipt Date: 20180820
  Transmission Date: 20181010
  Serious: Yes (Hospitalization)
  Sender: FDA-Public Use
  Company Number: None

PATIENT
  Age: 75 Year
  Sex: Male
  Weight: 71.4 kg

DRUGS (1)
  1. RITUXAN [Suspect]
     Active Substance: RITUXIMAB
     Indication: CHRONIC LYMPHOCYTIC LEUKAEMIA
     Route: 042
     Dates: start: 20180814, end: 20180814

REACTIONS (7)
  - Hyperhidrosis [None]
  - Heart rate increased [None]
  - Chills [None]
  - Pallor [None]
  - Feeling hot [None]
  - Cold sweat [None]
  - Blood pressure decreased [None]

NARRATIVE: CASE EVENT DATE: 20180814
